FAERS Safety Report 21279408 (Version 1)
Quarter: 2022Q3

REPORT INFORMATION
  Report Type: Spontaneous
  Country: ES (occurrence: ES)
  Receive Date: 20220901
  Receipt Date: 20220901
  Transmission Date: 20221027
  Serious: Yes (Life-Threatening, Hospitalization)
  Sender: FDA-Public Use
  Company Number: None

PATIENT
  Age: 67 Year
  Sex: Female

DRUGS (9)
  1. CARBOPLATIN [Suspect]
     Active Substance: CARBOPLATIN
     Indication: Ovarian cancer
     Dosage: (2323A), UNIT DOSE: 589 MG, FREQUENCY TIME-28 DAY, DURATION-57 DAYS
     Dates: start: 20210426, end: 20210621
  2. ABRAXANE [Suspect]
     Active Substance: PACLITAXEL
     Indication: Ovarian cancer
     Dosage: UNIT DOSE: 429 MG, FREQUENCY TIME-28 DAY, DURATION-57 DAYS
     Dates: start: 20210426, end: 20210621
  3. NIRAPARIB [Suspect]
     Active Substance: NIRAPARIB
     Indication: Ovarian cancer
     Dosage: (9348A), UNIT DOSE: 100 MG, FREQUENCY TIME-1 DAY, DURATION-22 DAYS
     Dates: start: 20211125, end: 20211216
  4. NIRAPARIB [Suspect]
     Active Substance: NIRAPARIB
     Dosage: (9348A), UNIT DOSE: 100 MG, FREQUENCY TIME-1 DAY, DURATION-57 DAYS
     Dates: start: 20210908, end: 20211103
  5. NIRAPARIB [Suspect]
     Active Substance: NIRAPARIB
     Dosage: 200 MILLIGRAM DAILY; 200MG ONCE A DAY (9348A), UNIT DOSE: 200 MG, FREQUENCY TIME-1 DAY, DURATION-23
     Dates: start: 20210803, end: 20210825
  6. LEVOTHYROXINE SODIUM [Concomitant]
     Active Substance: LEVOTHYROXINE SODIUM
     Indication: Product used for unknown indication
     Dosage: FORM STRENGTH: 50 MCG, UNIT DOSE: 50 MCG, FREQUENCY TIME-1 DAY
     Dates: start: 20140711
  7. FERROUS SULFATE [Concomitant]
     Active Substance: FERROUS SULFATE
     Indication: Product used for unknown indication
     Dosage: FORM STRENGTH: 80 MG, UNIT DOSE: 80 MG, FREQUENCY TIME-1 DAY
     Dates: start: 20220223
  8. CANDESARTAN CILEXETIL [Concomitant]
     Active Substance: CANDESARTAN CILEXETIL
     Indication: Product used for unknown indication
     Dosage: FORM STRENGTH: 16 MG, UNIT DOSE: 16 MG, FREQUENCY TIME-1 DAY
     Dates: start: 20110927
  9. SIMVASTATIN [Concomitant]
     Active Substance: SIMVASTATIN
     Indication: Product used for unknown indication
     Dosage: (1023A), UNIT DOSE: 20 MG, FREQUENCY TIME-1 DAY
     Dates: start: 20110728

REACTIONS (2)
  - Thrombocytopenia [Not Recovered/Not Resolved]
  - Acute myeloid leukaemia [Not Recovered/Not Resolved]

NARRATIVE: CASE EVENT DATE: 20210825
